FAERS Safety Report 10380464 (Version 2)
Quarter: 2014Q3

REPORT INFORMATION
  Report Type: Spontaneous
  Country: KZ (occurrence: KZ)
  Receive Date: 20140813
  Receipt Date: 20140915
  Transmission Date: 20150326
  Serious: Yes (Life-Threatening, Hospitalization, Other)
  Sender: FDA-Public Use
  Company Number: KZ-009507513-1408KAZ006882

PATIENT
  Age: 21 Year
  Sex: Male
  Weight: 67 kg

DRUGS (4)
  1. PEGINTRON [Suspect]
     Active Substance: PEGINTERFERON ALFA-2B
     Indication: CHRONIC HEPATITIS C
     Dosage: STRENGTH: 100 MCG, UNK
     Dates: start: 20140530, end: 20140801
  2. REBETOL [Suspect]
     Active Substance: RIBAVIRIN
     Indication: CHRONIC HEPATITIS C
     Dosage: STRENGTH 800 MG, UNK
     Route: 048
     Dates: start: 20140530, end: 20140801
  3. REBETOL [Suspect]
     Active Substance: RIBAVIRIN
     Indication: HEPATITIS C VIRUS TEST POSITIVE
  4. PEGINTRON [Suspect]
     Active Substance: PEGINTERFERON ALFA-2B
     Indication: HEPATITIS C VIRUS TEST POSITIVE

REACTIONS (18)
  - Lung abscess [Unknown]
  - Oral herpes [Unknown]
  - Decreased appetite [Unknown]
  - Herpes ophthalmic [Unknown]
  - Asthenia [Unknown]
  - Renal failure acute [Unknown]
  - Myositis [Unknown]
  - Azotaemia [Unknown]
  - Haemodialysis [Unknown]
  - Nausea [Unknown]
  - Sepsis [Unknown]
  - Vomiting [Unknown]
  - Chills [Unknown]
  - Vomiting [Unknown]
  - Paraspinal abscess [Unknown]
  - Body temperature increased [Unknown]
  - Pneumonia [Unknown]
  - Muscle atrophy [Unknown]

NARRATIVE: CASE EVENT DATE: 2014
